FAERS Safety Report 11114914 (Version 1)
Quarter: 2015Q2

REPORT INFORMATION
  Report Type: Spontaneous
  Country: US (occurrence: US)
  Receive Date: 20150515
  Receipt Date: 20150515
  Transmission Date: 20150821
  Serious: Yes (Other)
  Sender: FDA-Public Use
  Company Number: US-ASTRAZENECA-2014SE70474

PATIENT
  Age: 18898 Day
  Sex: Female

DRUGS (7)
  1. VICTOZA [Suspect]
     Active Substance: LIRAGLUTIDE
     Dosage: UNK
     Route: 065
     Dates: start: 20131030, end: 20140412
  2. VITAMIN D [Concomitant]
     Active Substance: CHOLECALCIFEROL
  3. BYETTA [Suspect]
     Active Substance: EXENATIDE
     Dosage: UNK
     Route: 065
     Dates: start: 20131030, end: 20140412
  4. BYETTA [Suspect]
     Active Substance: EXENATIDE
     Route: 065
     Dates: start: 20120131
  5. CRESTOR [Concomitant]
     Active Substance: ROSUVASTATIN CALCIUM
  6. NITROGLYCERINE [Concomitant]
     Active Substance: NITROGLYCERIN
  7. GLIMEPIRIDE. [Concomitant]
     Active Substance: GLIMEPIRIDE

REACTIONS (3)
  - Pancreatic carcinoma [Unknown]
  - Pancreatic neuroendocrine tumour [Unknown]
  - Pancreatic mass [Unknown]

NARRATIVE: CASE EVENT DATE: 20140101
